FAERS Safety Report 6404020-7 (Version None)
Quarter: 2009Q4

REPORT INFORMATION
  Report Type: 
  Country: None (occurrence: None)
  Receive Date: 20091012
  Receipt Date: 20090929
  Transmission Date: 20100525
  Serious: Yes (Hospitalization)
  Sender: FDA-Public Use
  Company Number: 1000009274

PATIENT
  Age: 79 Year
  Sex: Female

DRUGS (12)
  1. CITALOPRAM HYDROBROMIDE [Suspect]
     Dosage: ORAL
     Route: 048
     Dates: end: 20090909
  2. NEURONTIN [Suspect]
     Dosage: (800 MG),ORAL
     Route: 048
     Dates: end: 20090909
  3. CLASTOBAN [Suspect]
     Dosage: (800 MG),ORAL
     Route: 048
     Dates: end: 20090907
  4. VOGALENE [Suspect]
     Dosage: ORAL
     Route: 048
     Dates: end: 20090903
  5. SOLUPRED [Concomitant]
  6. ACETAMINOPHEN [Concomitant]
  7. SERESTA [Concomitant]
  8. NEXIUM [Concomitant]
  9. OXYCONTIN [Concomitant]
  10. OXYNORM [Concomitant]
  11. TARDYFERON [Concomitant]
  12. PRIMPERAN [Concomitant]

REACTIONS (5)
  - GENERAL PHYSICAL HEALTH DETERIORATION [None]
  - HEPATITIS [None]
  - NAUSEA [None]
  - VOMITING [None]
  - WEIGHT DECREASED [None]
